FAERS Safety Report 4294380-8 (Version None)
Quarter: 2004Q1

REPORT INFORMATION
  Report Type: 
  Country: None (occurrence: None)
  Receive Date: 20040211
  Receipt Date: 20040116
  Transmission Date: 20041129
  Serious: Yes (Other)
  Sender: FDA-Public Use
  Company Number: BE-BRISTOL-MYERS SQUIBB COMPANY-12479796

PATIENT
  Age: 53 Year
  Sex: Female

DRUGS (3)
  1. PARAPLATIN [Suspect]
     Indication: OVARIAN CANCER
     Route: 042
     Dates: start: 20031028, end: 20031028
  2. DECADRON [Concomitant]
     Route: 042
  3. KYTRIL [Concomitant]
     Route: 042

REACTIONS (3)
  - BRADYCARDIA [None]
  - DISCOMFORT [None]
  - HYPOTENSION [None]
